FAERS Safety Report 8966841 (Version 2)
Quarter: 2013Q1

REPORT INFORMATION
  Report Type: Spontaneous
  Country: FR (occurrence: FR)
  Receive Date: 20121217
  Receipt Date: 20130109
  Transmission Date: 20140127
  Serious: Yes (Hospitalization, Other)
  Sender: FDA-Public Use
  Company Number: FR-PFIZER INC-2012316901

PATIENT
  Age: 78 Year
  Sex: Male

DRUGS (5)
  1. INIPOMP [Suspect]
     Dosage: 40 MG, UNK
     Route: 048
     Dates: start: 20121004, end: 20121021
  2. ORBENINE [Concomitant]
     Dosage: UNK
     Dates: start: 201208, end: 20121025
  3. CIFLOX [Concomitant]
     Dosage: UNK
     Dates: start: 20121006, end: 20121015
  4. RIFADINE [Concomitant]
     Dosage: UNK
     Dates: start: 20121008
  5. ESOMEPRAZOLE [Concomitant]
     Dosage: UNK
     Dates: start: 20121022, end: 20121026

REACTIONS (2)
  - Thrombocytopenia [Recovered/Resolved]
  - Melaena [Unknown]
